FAERS Safety Report 10548916 (Version 1)
Quarter: 2014Q4

REPORT INFORMATION
  Report Type: Spontaneous
  Country: US (occurrence: None)
  Receive Date: 20141015
  Receipt Date: 20141015
  Transmission Date: 20150529
  Serious: No
  Sender: FDA-Public Use
  Company Number: 2014US003641

PATIENT
  Age: 56 Year
  Sex: Female

DRUGS (7)
  1. MAGNESIUM OXIDE (MAGNESIUM OXIDE) [Concomitant]
     Active Substance: MAGNESIUM OXIDE
  2. OXYCODONE (OXYCODONE) [Concomitant]
     Active Substance: OXYCODONE
  3. PROTONIX [Concomitant]
     Active Substance: PANTOPRAZOLE SODIUM
  4. ACYCLOVIR (ACICLOVIR SODIUM) [Concomitant]
  5. ICLUSIG [Suspect]
     Active Substance: PONATINIB
     Indication: ACUTE MYELOID LEUKAEMIA
     Route: 048
  6. ULTRAM (TRAMADOL HYDROCHLORIDE) [Concomitant]
     Active Substance: TRAMADOL HYDROCHLORIDE
  7. BACTRIM [Concomitant]
     Active Substance: SULFAMETHOXAZOLE\TRIMETHOPRIM

REACTIONS (3)
  - Arthralgia [None]
  - Off label use [None]
  - Myalgia [None]
